FAERS Safety Report 25325356 (Version 1)
Quarter: 2025Q2

REPORT INFORMATION
  Report Type: Report from Study
  Country: AT (occurrence: AT)
  Receive Date: 20250516
  Receipt Date: 20250516
  Transmission Date: 20250716
  Serious: Yes (Hospitalization)
  Sender: ABBVIE
  Company Number: AT-ABBVIE-6276181

PATIENT
  Age: 78 Year
  Sex: Female

DRUGS (10)
  1. SKYRIZI [Suspect]
     Active Substance: RISANKIZUMAB-RZAA
     Indication: Crohn^s disease
     Route: 058
     Dates: start: 202402
  2. Dioscomb [Concomitant]
     Indication: Product used for unknown indication
  3. INSPRA [Concomitant]
     Active Substance: EPLERENONE
     Indication: Product used for unknown indication
  4. TRAMADOL [Concomitant]
     Active Substance: TRAMADOL
     Indication: Pain
  5. TORSEMIDE [Concomitant]
     Active Substance: TORSEMIDE
     Indication: Product used for unknown indication
  6. PANTOPRAZOLE SODIUM [Concomitant]
     Active Substance: PANTOPRAZOLE SODIUM
     Indication: Product used for unknown indication
  7. FOLIC ACID [Concomitant]
     Active Substance: FOLIC ACID
     Indication: Rheumatic disorder
  8. LEVOTHYROXINE SODIUM\LIOTHYRONINE SODIUM [Concomitant]
     Active Substance: LEVOTHYROXINE SODIUM\LIOTHYRONINE SODIUM
     Indication: Autoimmune thyroiditis
  9. PREDNISOLONE [Concomitant]
     Active Substance: PREDNISOLONE
     Indication: Product used for unknown indication
  10. METHOTREXATE SODIUM [Concomitant]
     Active Substance: METHOTREXATE SODIUM
     Indication: Rheumatic disorder

REACTIONS (4)
  - Small intestine ulcer [Unknown]
  - Abdominal pain [Not Recovered/Not Resolved]
  - Enteritis [Unknown]
  - Diarrhoea [Not Recovered/Not Resolved]

NARRATIVE: CASE EVENT DATE: 20250101
